FAERS Safety Report 18445237 (Version 2)
Quarter: 2020Q4

REPORT INFORMATION
  Report Type: Spontaneous
  Country: US (occurrence: US)
  Receive Date: 20201030
  Receipt Date: 20201201
  Transmission Date: 20210114
  Serious: No
  Sender: FDA-Public Use
  Company Number: US-PFIZER INC-2020412836

PATIENT
  Age: 12 Year
  Sex: Male
  Weight: 25.4 kg

DRUGS (1)
  1. GENOTROPIN [Suspect]
     Active Substance: SOMATROPIN
     Indication: GROWTH HORMONE DEFICIENCY
     Dosage: UNK

REACTIONS (4)
  - Drug dose omission by device [Unknown]
  - Injection site pain [Unknown]
  - Poor quality device used [Unknown]
  - Needle issue [Unknown]

NARRATIVE: CASE EVENT DATE: 20201022
